FAERS Safety Report 17969277 (Version 2)
Quarter: 2022Q2

REPORT INFORMATION
  Report Type: Spontaneous
  Country: US (occurrence: US)
  Receive Date: 20200701
  Receipt Date: 20220614
  Transmission Date: 20220721
  Serious: No
  Sender: FDA-Public Use
  Company Number: US-PFM-2019-12145

PATIENT
  Sex: Female
  Weight: 9.977 kg

DRUGS (1)
  1. HEMANGEOL [Suspect]
     Active Substance: PROPRANOLOL HYDROCHLORIDE
     Indication: Product used for unknown indication
     Dosage: 3.8 ML, BID (2/DAY)
     Route: 048
     Dates: start: 201909

REACTIONS (3)
  - Dermatitis diaper [Unknown]
  - Off label use [Unknown]
  - Product administered to patient of inappropriate age [Unknown]
